FAERS Safety Report 19597367 (Version 4)
Quarter: 2024Q1

REPORT INFORMATION
  Report Type: Report from Study
  Country: EG (occurrence: EG)
  Receive Date: 20210722
  Receipt Date: 20240326
  Transmission Date: 20240410
  Serious: Yes (Other)
  Sender: FDA-Public Use
  Company Number: EG-NOVARTISPH-NVSC2021EG156452

PATIENT
  Age: 29 Year
  Sex: Male

DRUGS (5)
  1. COSENTYX [Suspect]
     Active Substance: SECUKINUMAB
     Indication: Ankylosing spondylitis
     Dosage: 150 MG, QMO
     Route: 058
     Dates: start: 202002, end: 202010
  2. COSENTYX [Suspect]
     Active Substance: SECUKINUMAB
     Indication: Fibromyalgia
     Dosage: UNK
     Route: 058
     Dates: start: 2022
  3. COSENTYX [Suspect]
     Active Substance: SECUKINUMAB
     Dosage: 150 MG
     Route: 058
     Dates: start: 20230806
  4. ESCITALOPRAM OXALATE [Concomitant]
     Active Substance: ESCITALOPRAM OXALATE
     Indication: Ankylosing spondylitis
     Dosage: 1 DOSAGE FORM (BEFORE SLEEP)
     Route: 065
     Dates: start: 20230806
  5. ESCITALOPRAM OXALATE [Concomitant]
     Active Substance: ESCITALOPRAM OXALATE
     Indication: Fibromyalgia

REACTIONS (5)
  - Back pain [Not Recovered/Not Resolved]
  - Movement disorder [Unknown]
  - Fatigue [Unknown]
  - Incorrect dose administered [Not Recovered/Not Resolved]
  - Off label use [Not Recovered/Not Resolved]

NARRATIVE: CASE EVENT DATE: 20200201
